FAERS Safety Report 16861755 (Version 1)
Quarter: 2019Q3

REPORT INFORMATION
  Report Type: Spontaneous
  Country: GR (occurrence: GR)
  Receive Date: 20190927
  Receipt Date: 20190927
  Transmission Date: 20191005
  Serious: Yes (Hospitalization)
  Sender: FDA-Public Use
  Company Number: GR-MYLANLABS-2019M1040390

PATIENT
  Age: 49 Year
  Sex: Female

DRUGS (1)
  1. AZITHROMYCIN MYLAN [Suspect]
     Active Substance: AZITHROMYCIN ANHYDROUS
     Indication: PROPHYLAXIS
     Dosage: UNK

REACTIONS (4)
  - Condition aggravated [Recovering/Resolving]
  - Product use in unapproved indication [Unknown]
  - Drug resistance [Recovering/Resolving]
  - Off label use [Unknown]
